FAERS Safety Report 6640028-4 (Version None)
Quarter: 2010Q1

REPORT INFORMATION
  Report Type: 
  Country: None (occurrence: None)
  Receive Date: 20100318
  Receipt Date: 20100306
  Transmission Date: 20100710
  Serious: Yes (Hospitalization)
  Sender: FDA-Public Use
  Company Number: PHHY2010MX14054

PATIENT
  Age: 34 Year
  Sex: Female

DRUGS (4)
  1. TRILEPTAL [Suspect]
     Indication: EPILEPSY
     Dosage: 2 TABLETS (300 MG) PER DAY
     Dates: start: 20060101
  2. ATEMPERATOR LP [Concomitant]
     Dosage: 3 TABLETS
     Dates: start: 20100101
  3. PHENYTOIN [Concomitant]
     Dosage: 1.5 TABLET
     Dates: start: 20080101
  4. DIAZEPAM (VAIIUM) [Concomitant]
     Dosage: UNK
     Dates: start: 20100201

REACTIONS (3)
  - DRUG EXPOSURE DURING PREGNANCY [None]
  - DRUG TOXICITY [None]
  - VOMITING [None]
